FAERS Safety Report 9825343 (Version 1)
Quarter: 2013Q4

REPORT INFORMATION
  Report Type: Spontaneous
  Country: US (occurrence: None)
  Receive Date: 20131223
  Receipt Date: 20131223
  Transmission Date: 20140711
  Serious: Yes (Other)
  Sender: FDA-Public Use
  Company Number: 219360LEO

PATIENT
  Age: 63 Year
  Sex: Male

DRUGS (1)
  1. PICATO [Suspect]
     Indication: PRECANCEROUS CELLS PRESENT
     Dosage: 3RD WEEK IN MAY
     Route: 061

REACTIONS (1)
  - Disease recurrence [None]
